FAERS Safety Report 20781460 (Version 2)
Quarter: 2022Q2

REPORT INFORMATION
  Report Type: Spontaneous
  Country: US (occurrence: US)
  Receive Date: 20220504
  Receipt Date: 20220530
  Transmission Date: 20220721
  Serious: No
  Sender: FDA-Public Use
  Company Number: US-BRISTOL-MYERS SQUIBB COMPANY-2022-017513

PATIENT
  Age: 53 Year
  Sex: Male

DRUGS (2)
  1. REVLIMID [Suspect]
     Active Substance: LENALIDOMIDE
     Indication: Follicular lymphoma
     Dosage: FREQ-DAILY
     Route: 048
     Dates: start: 202201
  2. REVLIMID [Suspect]
     Active Substance: LENALIDOMIDE
     Indication: Lymph node pain
     Route: 048
     Dates: start: 20220504

REACTIONS (5)
  - Swelling [Unknown]
  - Skin exfoliation [Unknown]
  - Abdominal distension [Unknown]
  - Memory impairment [Unknown]
  - Intentional product use issue [Unknown]
